FAERS Safety Report 20956144 (Version 1)
Quarter: 2022Q2

REPORT INFORMATION
  Report Type: Spontaneous
  Country: US (occurrence: None)
  Receive Date: 20220614
  Receipt Date: 20220614
  Transmission Date: 20220720
  Serious: Yes (Hospitalization, Other)
  Sender: FDA-Public Use
  Company Number: US-MICRO LABS LIMITED-ML2022-02550

PATIENT
  Age: 83 Year
  Sex: Male

DRUGS (7)
  1. BUPROPION [Suspect]
     Active Substance: BUPROPION
  2. TRAZODONE [Suspect]
     Active Substance: TRAZODONE HYDROCHLORIDE
  3. TRAZODONE [Suspect]
     Active Substance: TRAZODONE HYDROCHLORIDE
     Dosage: REDUCED
  4. QUETIAPINE [Suspect]
     Active Substance: QUETIAPINE
  5. DESVENLAFAXINE [Suspect]
     Active Substance: DESVENLAFAXINE
  6. CLONAZEPAM [Suspect]
     Active Substance: CLONAZEPAM
     Dosage: NIGHTLY
  7. CLONAZEPAM [Suspect]
     Active Substance: CLONAZEPAM
     Dosage: REDUCED

REACTIONS (8)
  - Cognitive disorder [Unknown]
  - Crying [Recovered/Resolved]
  - Fall [Unknown]
  - Feeling abnormal [Recovered/Resolved]
  - Dementia [Unknown]
  - Panic attack [Unknown]
  - Anxiety [Recovering/Resolving]
  - Memory impairment [Unknown]
